FAERS Safety Report 5803567-1 (Version None)
Quarter: 2008Q3

REPORT INFORMATION
  Report Type: 
  Country: None (occurrence: None)
  Receive Date: 20080703
  Receipt Date: 20080623
  Transmission Date: 20090109
  Serious: Yes (Hospitalization)
  Sender: FDA-Public Use
  Company Number: 2008BI003402

PATIENT
  Age: 31 Year
  Sex: Female

DRUGS (4)
  1. TYSABRI [Suspect]
     Indication: RELAPSING-REMITTING MULTIPLE SCLEROSIS
     Dosage: 300 MG;QM; IV
     Route: 042
     Dates: start: 20071107, end: 20080206
  2. AVONEX [Concomitant]
  3. REBIF [Concomitant]
  4. COPAXONE [Concomitant]

REACTIONS (13)
  - ALLERGY TO METALS [None]
  - CYTOMEGALOVIRUS TEST POSITIVE [None]
  - DIZZINESS [None]
  - FOOD ALLERGY [None]
  - GENERAL PHYSICAL HEALTH DETERIORATION [None]
  - HEPATOMEGALY [None]
  - HERPES SIMPLEX SEROLOGY POSITIVE [None]
  - INJECTION SITE HYPERSENSITIVITY [None]
  - MULTIPLE SCLEROSIS RELAPSE [None]
  - NAUSEA [None]
  - OPTIC NEURITIS [None]
  - POLYDIPSIA [None]
  - POLYURIA [None]
